FAERS Safety Report 14330215 (Version 1)
Quarter: 2017Q4

REPORT INFORMATION
  Report Type: Spontaneous
  Country: ZA (occurrence: ZA)
  Receive Date: 20171227
  Receipt Date: 20171227
  Transmission Date: 20180321
  Serious: Yes (Other)
  Sender: FDA-Public Use
  Company Number: ZA-SA-2017SA255493

PATIENT
  Sex: Female
  Weight: 52 kg

DRUGS (5)
  1. ARAVA [Suspect]
     Active Substance: LEFLUNOMIDE
     Route: 048
     Dates: start: 2011
  2. METHOTREXATE. [Suspect]
     Active Substance: METHOTREXATE
     Route: 065
     Dates: start: 1998
  3. CHLOROQUINE. [Suspect]
     Active Substance: CHLOROQUINE
     Route: 065
     Dates: start: 1990, end: 1998
  4. SALAZOPYRIN [Suspect]
     Active Substance: SULFASALAZINE
     Route: 065
     Dates: start: 1980, end: 1998
  5. FORTEO [Concomitant]
     Active Substance: TERIPARATIDE

REACTIONS (5)
  - Maculopathy [Unknown]
  - Neutropenia [Unknown]
  - Impaired work ability [Unknown]
  - Cerebrovascular accident [Unknown]
  - Rheumatoid arthritis [Not Recovered/Not Resolved]

NARRATIVE: CASE EVENT DATE: 201703
